FAERS Safety Report 6322015-9 (Version None)
Quarter: 2009Q3

REPORT INFORMATION
  Report Type: 
  Country: None (occurrence: None)
  Receive Date: 20090821
  Receipt Date: 20090821
  Transmission Date: 20100115
  Serious: Yes (Death)
  Sender: FDA-Public Use
  Company Number: None

PATIENT
  Age: 42 Year
  Sex: Male
  Weight: 63.5036 kg

DRUGS (3)
  1. PROCRIT [Suspect]
     Indication: ANAEMIA
     Dosage: INJECTIONS 1/WEEK- 4 WEEKS
     Dates: start: 20070126, end: 20070226
  2. PROCRIT [Suspect]
     Indication: DIABETES MELLITUS
     Dosage: INJECTIONS 1/WEEK- 4 WEEKS
     Dates: start: 20070126, end: 20070226
  3. PROCRIT [Concomitant]

REACTIONS (1)
  - BLOOD PRESSURE INCREASED [None]
